FAERS Safety Report 22080140 (Version 1)
Quarter: 2023Q1

REPORT INFORMATION
  Report Type: Spontaneous
  Country: CN (occurrence: CN)
  Receive Date: 20230309
  Receipt Date: 20230309
  Transmission Date: 20230417
  Serious: Yes (Other)
  Sender: FDA-Public Use
  Company Number: CN-BAYER-2023A030380

PATIENT
  Age: 49 Year
  Sex: Female
  Weight: 60 kg

DRUGS (2)
  1. PRIMOVIST [Suspect]
     Active Substance: GADOXETATE DISODIUM
     Indication: Magnetic resonance imaging abdominal
     Dosage: 6 ML, ONCE
     Route: 041
     Dates: start: 20230305, end: 20230305
  2. PRIMOVIST [Suspect]
     Active Substance: GADOXETATE DISODIUM
     Indication: Hepatitis B

REACTIONS (6)
  - Dizziness [Recovered/Resolved]
  - Chest discomfort [Recovered/Resolved]
  - Palpitations [Recovered/Resolved]
  - Erythema [Recovered/Resolved]
  - Hyperhidrosis [Recovered/Resolved]
  - Blood pressure decreased [None]

NARRATIVE: CASE EVENT DATE: 20230305
